FAERS Safety Report 23515086 (Version 2)
Quarter: 2024Q1

REPORT INFORMATION
  Report Type: Spontaneous
  Country: TR (occurrence: TR)
  Receive Date: 20240212
  Receipt Date: 20240226
  Transmission Date: 20240409
  Serious: Yes (Other)
  Sender: FDA-Public Use
  Company Number: TR-SANOFI-01931949

PATIENT
  Age: 62 Year
  Sex: Male

DRUGS (2)
  1. TOUJEO [Suspect]
     Active Substance: INSULIN GLARGINE
     Dosage: 20 IU
     Route: 065
     Dates: start: 202307
  2. TOUJEO [Suspect]
     Active Substance: INSULIN GLARGINE
     Dosage: 14 IU

REACTIONS (3)
  - Erectile dysfunction [Unknown]
  - Hormone level abnormal [Unknown]
  - Intentional product use issue [Unknown]

NARRATIVE: CASE EVENT DATE: 20231101
